FAERS Safety Report 23055592 (Version 2)
Quarter: 2023Q4

REPORT INFORMATION
  Report Type: Spontaneous
  Country: US (occurrence: US)
  Receive Date: 20231011
  Receipt Date: 20231212
  Transmission Date: 20240110
  Serious: No
  Sender: FDA-Public Use
  Company Number: US-JNJFOC-20231006625

PATIENT
  Age: 9 Decade
  Sex: Female

DRUGS (7)
  1. WOMENS ROGAINE UNSCENTED [Suspect]
     Active Substance: MINOXIDIL
     Indication: Alopecia
     Dosage: HALF A CAP. EVERY MORNING.
     Route: 061
     Dates: start: 2008
  2. WOMENS ROGAINE UNSCENTED [Suspect]
     Active Substance: MINOXIDIL
     Dosage: LITTLE MORE THAN HALF A CAPFUL/USED MORE PRODUCT
     Route: 061
  3. GABAPENTIN [Concomitant]
     Active Substance: GABAPENTIN
     Indication: Hot flush
     Route: 065
     Dates: start: 2014
  4. EXEMESTANE [Concomitant]
     Active Substance: EXEMESTANE
     Indication: Neoplasm malignant
     Route: 065
     Dates: start: 2013
  5. OXYCODONE [Concomitant]
     Active Substance: OXYCODONE
     Indication: Pain
     Route: 065
     Dates: start: 2020
  6. VENLAFAXINE [Concomitant]
     Active Substance: VENLAFAXINE HYDROCHLORIDE
     Indication: Hot flush
     Route: 065
     Dates: start: 2014
  7. TRAZODONE [Concomitant]
     Active Substance: TRAZODONE HYDROCHLORIDE
     Indication: Sleep disorder
     Route: 065
     Dates: start: 2020

REACTIONS (2)
  - Alopecia [Recovering/Resolving]
  - Overdose [Unknown]

NARRATIVE: CASE EVENT DATE: 20230101
